FAERS Safety Report 8966959 (Version 1)
Quarter: 2012Q4

REPORT INFORMATION
  Report Type: 
  Country: GB (occurrence: GB)
  Receive Date: 20121217
  Receipt Date: 20121217
  Transmission Date: 20130627
  Serious: Yes (Life-Threatening, Hospitalization)
  Sender: FDA-Public Use
  Company Number: GB-BAYER-2012-130730

PATIENT
  Age: 23 Year
  Sex: Female

DRUGS (1)
  1. MIRENA [Suspect]
     Indication: DYSFUNCTIONAL UTERINE BLEEDING
     Route: 015

REACTIONS (6)
  - Menorrhagia [Recovering/Resolving]
  - Haemoglobin decreased [None]
  - Arteriovenous malformation [Recovering/Resolving]
  - Device expulsion [None]
  - Depressed mood [None]
  - Fear [None]
